FAERS Safety Report 25920599 (Version 1)
Quarter: 2025Q4

REPORT INFORMATION
  Report Type: Spontaneous
  Country: US (occurrence: US)
  Receive Date: 20251014
  Receipt Date: 20251014
  Transmission Date: 20260118
  Serious: No
  Sender: FENNEC PHARMACEUTICALS
  Company Number: US-FENNEC PHARMACEUTICALS, INC.-2025FEN00083

PATIENT
  Age: 34 Year
  Sex: Female

DRUGS (2)
  1. PEDMARK [Suspect]
     Active Substance: SODIUM THIOSULFATE
     Dosage: 40 G (20 MG/M2) OVER 30-60 MINUTES
     Route: 042
     Dates: start: 20250808
  2. COMPAZINE [Concomitant]
     Active Substance: PROCHLORPERAZINE MALEATE
     Dosage: 5 MG
     Route: 042
     Dates: start: 20250815, end: 20250815

REACTIONS (9)
  - Feeling hot [Unknown]
  - Burning sensation [Unknown]
  - Contusion [Unknown]
  - Tinnitus [Not Recovered/Not Resolved]
  - Nausea [Unknown]
  - Vomiting [Recovered/Resolved]
  - Off label use [Unknown]
  - Injection site extravasation [Unknown]
  - Incorrect dose administered [Unknown]

NARRATIVE: CASE EVENT DATE: 20250801
